FAERS Safety Report 22914747 (Version 11)
Quarter: 2025Q1

REPORT INFORMATION
  Report Type: Report from Study
  Country: CA (occurrence: CA)
  Receive Date: 20230907
  Receipt Date: 20250221
  Transmission Date: 20250409
  Serious: Yes (Hospitalization, Other)
  Sender: CELLTRION
  Company Number: CA-CELLTRION INC.-2023CA017470

PATIENT

DRUGS (45)
  1. BEVACIZUMAB [Suspect]
     Active Substance: BEVACIZUMAB
     Indication: Non-small cell lung cancer
     Route: 042
  2. BEVACIZUMAB [Suspect]
     Active Substance: BEVACIZUMAB
     Route: 042
  3. BEVACIZUMAB [Suspect]
     Active Substance: BEVACIZUMAB
     Route: 042
  4. BEVACIZUMAB [Suspect]
     Active Substance: BEVACIZUMAB
     Route: 042
  5. BEVACIZUMAB [Suspect]
     Active Substance: BEVACIZUMAB
     Route: 042
  6. BEVACIZUMAB [Suspect]
     Active Substance: BEVACIZUMAB
     Route: 042
  7. BEVACIZUMAB [Suspect]
     Active Substance: BEVACIZUMAB
     Route: 042
  8. BEVACIZUMAB [Suspect]
     Active Substance: BEVACIZUMAB
     Route: 042
  9. BEVACIZUMAB [Suspect]
     Active Substance: BEVACIZUMAB
     Route: 042
  10. BEVACIZUMAB [Suspect]
     Active Substance: BEVACIZUMAB
     Route: 042
  11. BEVACIZUMAB [Suspect]
     Active Substance: BEVACIZUMAB
     Route: 042
  12. BEVACIZUMAB [Suspect]
     Active Substance: BEVACIZUMAB
     Route: 042
  13. BEVACIZUMAB [Suspect]
     Active Substance: BEVACIZUMAB
     Route: 042
  14. BEVACIZUMAB [Suspect]
     Active Substance: BEVACIZUMAB
     Route: 042
  15. BEVACIZUMAB [Suspect]
     Active Substance: BEVACIZUMAB
     Route: 042
  16. BEVACIZUMAB [Suspect]
     Active Substance: BEVACIZUMAB
     Route: 042
  17. BEVACIZUMAB [Suspect]
     Active Substance: BEVACIZUMAB
     Route: 042
  18. BEVACIZUMAB [Suspect]
     Active Substance: BEVACIZUMAB
     Route: 042
  19. BEVACIZUMAB [Suspect]
     Active Substance: BEVACIZUMAB
     Route: 042
  20. BEVACIZUMAB [Suspect]
     Active Substance: BEVACIZUMAB
     Route: 042
  21. BEVACIZUMAB [Suspect]
     Active Substance: BEVACIZUMAB
     Route: 042
  22. BEVACIZUMAB [Suspect]
     Active Substance: BEVACIZUMAB
     Route: 042
  23. BEVACIZUMAB [Suspect]
     Active Substance: BEVACIZUMAB
     Route: 042
  24. BEVACIZUMAB [Suspect]
     Active Substance: BEVACIZUMAB
     Route: 042
  25. BEVACIZUMAB [Suspect]
     Active Substance: BEVACIZUMAB
     Route: 042
  26. BEVACIZUMAB [Suspect]
     Active Substance: BEVACIZUMAB
     Route: 042
  27. BEVACIZUMAB [Suspect]
     Active Substance: BEVACIZUMAB
     Route: 042
  28. BEVACIZUMAB [Suspect]
     Active Substance: BEVACIZUMAB
     Route: 042
  29. BEVACIZUMAB [Suspect]
     Active Substance: BEVACIZUMAB
     Route: 042
  30. BEVACIZUMAB [Suspect]
     Active Substance: BEVACIZUMAB
     Route: 042
  31. BEVACIZUMAB [Suspect]
     Active Substance: BEVACIZUMAB
     Route: 042
  32. BEVACIZUMAB [Suspect]
     Active Substance: BEVACIZUMAB
     Route: 042
  33. BEVACIZUMAB [Suspect]
     Active Substance: BEVACIZUMAB
     Route: 042
  34. BEVACIZUMAB [Suspect]
     Active Substance: BEVACIZUMAB
     Route: 042
  35. BEVACIZUMAB [Suspect]
     Active Substance: BEVACIZUMAB
     Route: 042
  36. BEVACIZUMAB [Suspect]
     Active Substance: BEVACIZUMAB
     Route: 042
  37. BEVACIZUMAB [Suspect]
     Active Substance: BEVACIZUMAB
     Route: 042
  38. BEVACIZUMAB [Suspect]
     Active Substance: BEVACIZUMAB
     Route: 042
  39. BEVACIZUMAB [Suspect]
     Active Substance: BEVACIZUMAB
     Route: 042
  40. BEVACIZUMAB [Suspect]
     Active Substance: BEVACIZUMAB
     Route: 042
  41. BEVACIZUMAB [Suspect]
     Active Substance: BEVACIZUMAB
     Route: 042
  42. FOLIC ACID [Concomitant]
     Active Substance: FOLIC ACID
     Route: 048
  43. HYDROCHLOROTHIAZIDE [Concomitant]
     Active Substance: HYDROCHLOROTHIAZIDE
     Indication: Hypertension
     Route: 048
  44. METOCLOPRAMIDE [Concomitant]
     Active Substance: METOCLOPRAMIDE
  45. TYLENOL [Concomitant]
     Active Substance: ACETAMINOPHEN
     Indication: Product used for unknown indication

REACTIONS (21)
  - Blood pressure diastolic abnormal [Not Recovered/Not Resolved]
  - Blood pressure fluctuation [Not Recovered/Not Resolved]
  - Blood pressure systolic abnormal [Not Recovered/Not Resolved]
  - Heart rate decreased [Not Recovered/Not Resolved]
  - Pleural effusion [Not Recovered/Not Resolved]
  - Respiratory rate increased [Not Recovered/Not Resolved]
  - Tooth disorder [Not Recovered/Not Resolved]
  - Walking aid user [Not Recovered/Not Resolved]
  - Weight increased [Not Recovered/Not Resolved]
  - Blood pressure diastolic increased [Not Recovered/Not Resolved]
  - Blood pressure systolic increased [Not Recovered/Not Resolved]
  - Blood pressure increased [Not Recovered/Not Resolved]
  - COVID-19 [Not Recovered/Not Resolved]
  - Decreased appetite [Not Recovered/Not Resolved]
  - Dyspnoea [Not Recovered/Not Resolved]
  - Heart rate increased [Not Recovered/Not Resolved]
  - Hypertension [Not Recovered/Not Resolved]
  - Oxygen saturation decreased [Not Recovered/Not Resolved]
  - Supraventricular tachycardia [Not Recovered/Not Resolved]
  - Weight decreased [Not Recovered/Not Resolved]
  - Overdose [Unknown]
